FAERS Safety Report 6770419-2 (Version None)
Quarter: 2010Q2

REPORT INFORMATION
  Report Type: 
  Country: None (occurrence: None)
  Receive Date: 20100615
  Receipt Date: 20100608
  Transmission Date: 20101027
  Serious: Yes (Other)
  Sender: FDA-Public Use
  Company Number: BR-SANOFI-AVENTIS-2010SA033206

PATIENT
  Age: 67 Year
  Sex: Male

DRUGS (9)
  1. LANTUS [Suspect]
     Indication: DIABETES MELLITUS
     Route: 058
  2. OPTIPEN [Suspect]
     Dates: start: 20100101
  3. DISGREN [Concomitant]
     Indication: TYPE 2 DIABETES MELLITUS
     Dosage: 1 TAB
     Route: 058
  4. CITALOR [Concomitant]
     Indication: TYPE 2 DIABETES MELLITUS
     Dosage: 2 TABS
     Route: 048
  5. BENERVA [Concomitant]
     Indication: OSTEOPOROSIS
     Dosage: 1 TAB
     Route: 048
  6. CALCIUM CARBONATE/COLECALCIFEROL [Concomitant]
     Indication: OSTEOPOROSIS
     Dosage: 1 TAB
     Route: 048
  7. CILOSTAZOL [Concomitant]
     Dosage: 2 TABS
     Route: 048
  8. ALL OTHER THERAPEUTIC PRODUCTS [Concomitant]
     Indication: OSTEOPOROSIS
     Dosage: 1 TAB
     Route: 048
  9. CALCITRIOL [Concomitant]
     Indication: TYPE 2 DIABETES MELLITUS
     Dosage: 1 TAB 3XW

REACTIONS (3)
  - AMPUTATION [None]
  - LIMB INJURY [None]
  - THROMBOSIS [None]
